FAERS Safety Report 4978170-6 (Version None)
Quarter: 2006Q2

REPORT INFORMATION
  Report Type: 
  Country: None (occurrence: None)
  Receive Date: 20060417
  Receipt Date: 20060407
  Transmission Date: 20061013
  Serious: Yes (Death, Hospitalization)
  Sender: FDA-Public Use
  Company Number: 223918

PATIENT
  Age: 59 Year
  Sex: Male
  Weight: 90 kg

DRUGS (3)
  1. AVASTIN [Suspect]
     Indication: ADENOCARCINOMA PANCREAS
     Dosage: 900 MG, DAYS 1 +15, INTRAVENOUS
     Route: 042
     Dates: start: 20060126
  2. GEMCITABINE [Suspect]
     Indication: ADENOCARCINOMA PANCREAS
     Dosage: 2150 MG, DAYS 1+ 15, INTRAVENOUS
     Route: 042
     Dates: start: 20060126
  3. OXALIPLATIN (OXALIPLATIN) [Suspect]
     Indication: ADENOCARCINOMA PANCREAS
     Dosage: 215 MG, DAYS 1 + 15, INTRAVENOUS
     Route: 042
     Dates: start: 20060127

REACTIONS (8)
  - ASTHENIA [None]
  - JAUNDICE [None]
  - LIVER FUNCTION TEST ABNORMAL [None]
  - LOBAR PNEUMONIA [None]
  - MALIGNANT NEOPLASM PROGRESSION [None]
  - ORAL INTAKE REDUCED [None]
  - PANCREATIC CARCINOMA [None]
  - SEPSIS [None]
